FAERS Safety Report 6901026-6 (Version None)
Quarter: 2010Q3

REPORT INFORMATION
  Report Type: 
  Country: None (occurrence: None)
  Receive Date: 20100730
  Receipt Date: 20100723
  Transmission Date: 20110219
  Serious: Yes (Hospitalization)
  Sender: FDA-Public Use
  Company Number: 016057

PATIENT
  Sex: Female
  Weight: 57 kg

DRUGS (5)
  1. CERTOLIZUMAB PEGOL (CERTOLIZUMAB PEGOL) [Suspect]
     Indication: RHEUMATOID ARTHRITIS
     Dosage: 200 MG 1X/2 WEEKS SUBCUTANEOUS
     Route: 058
     Dates: start: 20100412
  2. METHOTREXATE [Concomitant]
  3. METYPRED [Concomitant]
  4. MELOXICAM [Concomitant]
  5. FOLIC ACID [Concomitant]

REACTIONS (2)
  - CONDITION AGGRAVATED [None]
  - GOITRE [None]
